FAERS Safety Report 23795044 (Version 1)
Quarter: 2024Q2

REPORT INFORMATION
  Report Type: Spontaneous
  Country: CN (occurrence: CN)
  Receive Date: 20240429
  Receipt Date: 20240429
  Transmission Date: 20240717
  Serious: Yes (Life-Threatening)
  Sender: FDA-Public Use
  Company Number: CN-002147023-NVSC2024CN089726

PATIENT
  Age: 28 Year
  Sex: Female
  Weight: 58.5 kg

DRUGS (6)
  1. SANDOSTATIN [Suspect]
     Active Substance: OCTREOTIDE ACETATE
     Indication: Pancreatitis acute
     Dosage: 6 ML, QD (PUMP INJECTION)
     Route: 065
     Dates: start: 20240420, end: 20240420
  2. SANDOSTATIN [Suspect]
     Active Substance: OCTREOTIDE ACETATE
  3. SANDOSTATIN [Suspect]
     Active Substance: OCTREOTIDE ACETATE
  4. SOMATOSTATIN [Suspect]
     Active Substance: SOMATOSTATIN
     Indication: Pneumonia
     Dosage: 3 MG, QD (PUMP INJECTION)
     Route: 065
     Dates: start: 20240421, end: 20240421
  5. SODIUM CHLORIDE [Concomitant]
     Active Substance: SODIUM CHLORIDE
     Indication: Vehicle solution use
     Dosage: 42 ML, QD (PUMP INJECTION)
     Route: 065
     Dates: start: 20240420, end: 20240420
  6. SODIUM CHLORIDE [Concomitant]
     Active Substance: SODIUM CHLORIDE
     Dosage: 48 ML, QD (PUMP INJECTION)
     Route: 065
     Dates: start: 20240421, end: 20240421

REACTIONS (3)
  - Bradycardia [Recovering/Resolving]
  - Chest discomfort [Recovering/Resolving]
  - Abdominal distension [Recovering/Resolving]

NARRATIVE: CASE EVENT DATE: 20240420
